FAERS Safety Report 5001839-4 (Version None)
Quarter: 2006Q2

REPORT INFORMATION
  Report Type: 
  Country: None (occurrence: None)
  Receive Date: 20060512
  Receipt Date: 20060512
  Transmission Date: 20061013
  Serious: Yes (Other)
  Sender: FDA-Public Use
  Company Number: None

PATIENT
  Sex: Male
  Weight: 30.2 kg

DRUGS (2)
  1. ADVATE  944 UNITS / VIAL BAXTER [Suspect]
     Indication: FACTOR VIII DEFICIENCY
     Dosage: 1201 UNITS THREE TIMES A WEEK IV
     Route: 042
     Dates: start: 20060315, end: 20060508
  2. ADVATE 257 UNITS / VIAL BAXTER [Suspect]

REACTIONS (1)
  - RASH PRURITIC [None]
